FAERS Safety Report 4390282-7 (Version None)
Quarter: 2004Q3

REPORT INFORMATION
  Report Type: 
  Country: None (occurrence: None)
  Receive Date: 20040706
  Receipt Date: 20040628
  Transmission Date: 20050211
  Serious: Yes (Life-Threatening)
  Sender: FDA-Public Use
  Company Number: JP-ROCHE-372390

PATIENT
  Age: 10 Year
  Sex: Male

DRUGS (2)
  1. TAMIFLU [Suspect]
     Route: 048
     Dates: start: 20040202, end: 20040204
  2. ACETAMINOPHEN [Concomitant]
     Route: 048

REACTIONS (7)
  - DEPRESSED LEVEL OF CONSCIOUSNESS [None]
  - FALL [None]
  - ILIUM FRACTURE [None]
  - PNEUMOTHORAX [None]
  - SPLENIC INJURY [None]
  - UNEVALUABLE EVENT [None]
  - WRIST FRACTURE [None]
